FAERS Safety Report 4462408-8 (Version None)
Quarter: 2004Q3

REPORT INFORMATION
  Report Type: 
  Country: None (occurrence: None)
  Receive Date: 20040924
  Receipt Date: 20040917
  Transmission Date: 20050211
  Serious: Yes (Other)
  Sender: FDA-Public Use
  Company Number: HQWYE460620AUG04

PATIENT
  Age: 63 Year
  Sex: Female

DRUGS (4)
  1. PREMIQUE (CONJUGATED ESTROGENS/MEDROXYPROGESTERONE ACETATE, TABLET,) [Suspect]
     Indication: HORMONE REPLACEMENT THERAPY
     Route: 048
     Dates: start: 20030619
  2. CLOBETASOL PROPIONATE (CLOBETASOL PROPIONATE) [Concomitant]
  3. COD-LIVER OIL ^VITAGLOW^ (COD LIVER OIL) [Concomitant]
  4. BECLOMETHASONE (BECLOMETHASONE) [Concomitant]

REACTIONS (2)
  - ENDOMETRIAL SARCOMA [None]
  - UTERINE PERFORATION [None]
